FAERS Safety Report 24173867 (Version 1)
Quarter: 2024Q3

REPORT INFORMATION
  Report Type: Spontaneous
  Country: GB (occurrence: GB)
  Receive Date: 20240805
  Receipt Date: 20240805
  Transmission Date: 20241017
  Serious: Yes (Other)
  Sender: ACCORD
  Company Number: None

PATIENT
  Age: 61 Year
  Sex: Female
  Weight: 97 kg

DRUGS (1)
  1. ATORVASTATIN [Suspect]
     Active Substance: ATORVASTATIN
     Indication: Diabetes mellitus
     Dates: start: 20240526, end: 20240605

REACTIONS (2)
  - Muscle spasms [Recovered/Resolved with Sequelae]
  - Asthma [Recovered/Resolved with Sequelae]

NARRATIVE: CASE EVENT DATE: 20240528
